FAERS Safety Report 8838083 (Version 1)
Quarter: 2012Q4

REPORT INFORMATION
  Report Type: 
  Country: US (occurrence: US)
  Receive Date: 20121012
  Receipt Date: 20121012
  Transmission Date: 20130627
  Serious: Yes (Other)
  Sender: FDA-Public Use
  Company Number: US-ASTELLAS-2012US009941

PATIENT
  Sex: Male
  Weight: 78 kg

DRUGS (16)
  1. TARCEVA [Suspect]
     Indication: PANCREATIC CARCINOMA METASTATIC
     Dosage: 100 mg, UID/QD
     Route: 048
     Dates: start: 20120920, end: 20120924
  2. DOXYCYCLINE [Concomitant]
     Indication: PRODUCT USED FOR UNKNOWN INDICATION
     Dosage: 100 mg, bid
     Route: 048
  3. ONDANSETRON HCL [Concomitant]
     Indication: PRODUCT USED FOR UNKNOWN INDICATION
     Dosage: 1 DF, bid
     Route: 048
     Dates: start: 20120801
  4. ONDANSETRON HCL [Concomitant]
     Dosage: 1 DF, Q12 hours, prn
     Route: 048
  5. PROCHLORPERAZINE MALEATE [Concomitant]
     Indication: NAUSEA
     Dosage: 1 DF, Q6 hours, prn
     Dates: start: 20120802
  6. PALONOSETRON [Concomitant]
     Indication: PRODUCT USED FOR UNKNOWN INDICATION
     Dosage: 250 ug, once, push
     Route: 042
     Dates: start: 20120808
  7. GEMCITABINE HCL [Concomitant]
     Indication: PRODUCT USED FOR UNKNOWN INDICATION
     Dosage: 1100 mg, once
     Route: 042
     Dates: start: 20120808
  8. PANTOPRAZOLE [Concomitant]
     Indication: PRODUCT USED FOR UNKNOWN INDICATION
     Dosage: 40 mg, UID/QD
     Route: 048
     Dates: start: 20120424
  9. MEPERIDINE                         /00016302/ [Concomitant]
     Indication: PRODUCT USED FOR UNKNOWN INDICATION
     Dosage: 50 mg, UID/QD
     Route: 048
     Dates: start: 20120424
  10. LEVOTHYROXINE                      /00068002/ [Concomitant]
     Indication: PRODUCT USED FOR UNKNOWN INDICATION
     Dosage: 0.1 mg, UID/QD
     Route: 048
     Dates: start: 20120424
  11. ATENOLOL [Concomitant]
     Indication: PRODUCT USED FOR UNKNOWN INDICATION
     Dosage: 25 mg, UID/QD
     Route: 048
     Dates: start: 20120424
  12. ACETAMINOPHEN [Concomitant]
     Indication: PRODUCT USED FOR UNKNOWN INDICATION
     Dosage: 500 mg, prn
     Route: 048
     Dates: start: 20120424
  13. MULTIVITAMIN AND MINERAL SUPPLEMENT [Concomitant]
     Indication: PRODUCT USED FOR UNKNOWN INDICATION
     Dosage: 1 DF, UID/QD
     Route: 048
     Dates: start: 20120424
  14. BETAMETHASONE DIPROPIONATE [Concomitant]
     Indication: PRODUCT USED FOR UNKNOWN INDICATION
     Dosage: 0.05 %, bid
     Route: 061
  15. DOCUSATE SODIUM [Concomitant]
     Indication: PRODUCT USED FOR UNKNOWN INDICATION
     Dosage: 1 DF, UID/QD
     Route: 048
     Dates: start: 20120423
  16. NORMAL SALINE [Concomitant]
     Indication: PRODUCT USED FOR UNKNOWN INDICATION
     Dosage: 250 ml, once
     Route: 042

REACTIONS (5)
  - Pain of skin [Unknown]
  - Pruritus [Unknown]
  - Rash generalised [Recovering/Resolving]
  - Oral pain [Unknown]
  - Glossodynia [Unknown]
